FAERS Safety Report 5274641-6 (Version None)
Quarter: 2007Q1

REPORT INFORMATION
  Report Type: 
  Country: None (occurrence: None)
  Receive Date: 20070320
  Receipt Date: 20070309
  Transmission Date: 20070707
  Serious: Yes (Hospitalization)
  Sender: FDA-Public Use
  Company Number: S07-USA-00449-01

PATIENT
  Age: 52 Year
  Sex: Male
  Weight: 83.0083 kg

DRUGS (7)
  1. CAMPRAL [Suspect]
     Indication: ALCOHOLISM
     Dosage: 666 MG TID PO
     Route: 048
     Dates: start: 20050909, end: 20051001
  2. LIBRIUM [Concomitant]
  3. PROTONIX [Concomitant]
  4. NORVASC [Concomitant]
  5. THIAMINE [Concomitant]
  6. LACTULOSE [Concomitant]
  7. GUAIFENESIN [Concomitant]

REACTIONS (31)
  - ABDOMINAL DISTENSION [None]
  - ABDOMINAL PAIN [None]
  - ASCITES [None]
  - ASTHENIA [None]
  - BLOOD CHLORIDE DECREASED [None]
  - BLOOD GLUCOSE INCREASED [None]
  - BLOOD SODIUM DECREASED [None]
  - CAPUT MEDUSAE [None]
  - CHRONIC HEPATIC FAILURE [None]
  - DECREASED APPETITE [None]
  - DRUG WITHDRAWAL SYNDROME [None]
  - DYSPNOEA [None]
  - GAIT DISTURBANCE [None]
  - GASTRITIS [None]
  - GASTROINTESTINAL HAEMORRHAGE [None]
  - GASTROINTESTINAL MOTILITY DISORDER [None]
  - GENERALISED OEDEMA [None]
  - HEPATIC CIRRHOSIS [None]
  - HYPOTENSION [None]
  - MALNUTRITION [None]
  - NAUSEA [None]
  - OESOPHAGITIS [None]
  - PAIN [None]
  - PNEUMONIA [None]
  - REFUSAL OF TREATMENT BY PATIENT [None]
  - RENAL FAILURE [None]
  - SERUM FERRITIN INCREASED [None]
  - SPIDER NAEVUS [None]
  - TREMOR [None]
  - VARICES OESOPHAGEAL [None]
  - WEIGHT INCREASED [None]
